FAERS Safety Report 16316903 (Version 1)
Quarter: 2019Q2

REPORT INFORMATION
  Report Type: Report from Study
  Country: None (occurrence: US)
  Receive Date: 20190515
  Receipt Date: 20190515
  Transmission Date: 20190711
  Serious: Yes (Other)
  Sender: FDA-Public Use
  Company Number: US-ABBVIE-18K-163-2481186-00

PATIENT
  Age: 62 Year
  Sex: Male

DRUGS (1)
  1. HUMIRA [Suspect]
     Active Substance: ADALIMUMAB
     Indication: RHEUMATOID ARTHRITIS
     Route: 058

REACTIONS (6)
  - Procedural pain [Unknown]
  - Rotator cuff syndrome [Recovered/Resolved]
  - Ankle fracture [Recovered/Resolved]
  - Skin cancer [Recovered/Resolved]
  - Accident [Recovering/Resolving]
  - Acne [Unknown]

NARRATIVE: CASE EVENT DATE: 201807
